FAERS Safety Report 20006039 (Version 1)
Quarter: 2021Q4

REPORT INFORMATION
  Report Type: Spontaneous
  Country: US (occurrence: US)
  Receive Date: 20211028
  Receipt Date: 20211028
  Transmission Date: 20220303
  Serious: No
  Sender: FDA-Public Use
  Company Number: US-BAYER-2021A239012

PATIENT
  Age: 44 Year

DRUGS (1)
  1. CLARITIN [Suspect]
     Active Substance: LORATADINE
     Indication: Product use in unapproved indication
     Dosage: 1 DF, QD
     Route: 048
     Dates: start: 202103

REACTIONS (1)
  - Therapeutic response unexpected [None]
